FAERS Safety Report 24137491 (Version 1)
Quarter: 2024Q3

REPORT INFORMATION
  Report Type: Spontaneous
  Country: US (occurrence: US)
  Receive Date: 20240725
  Receipt Date: 20240725
  Transmission Date: 20241016
  Serious: Yes (Hospitalization, Other)
  Sender: JOHNSON AND JOHNSON
  Company Number: US-JNJFOC-20240752633

PATIENT
  Sex: Male
  Weight: 84.898 kg

DRUGS (41)
  1. XARELTO [Suspect]
     Active Substance: RIVAROXABAN
     Indication: Atrial fibrillation
     Route: 048
  2. XARELTO [Suspect]
     Active Substance: RIVAROXABAN
     Indication: Cerebrovascular accident prophylaxis
     Route: 048
     Dates: start: 20210818, end: 20220417
  3. CLARITIN [Concomitant]
     Active Substance: LORATADINE
     Route: 048
  4. CLONAZEPAM [Concomitant]
     Active Substance: CLONAZEPAM
     Dosage: TAKE 1 1/2 TABLET BY MOUTH QPM
     Route: 048
     Dates: start: 20210819
  5. GABAPENTIN [Concomitant]
     Active Substance: GABAPENTIN
     Dosage: 1 CAPSULE EVERYDAY AT BED TIME
     Route: 048
     Dates: start: 20210818, end: 20220419
  6. HYDROCHLOROTHIAZIDE [Concomitant]
     Active Substance: HYDROCHLOROTHIAZIDE
     Route: 048
     Dates: start: 20210818, end: 20210819
  7. LAMOTRIGINE [Concomitant]
     Active Substance: LAMOTRIGINE
     Route: 048
  8. LISINOPRIL [Concomitant]
     Active Substance: LISINOPRIL
     Route: 048
     Dates: start: 20210818, end: 20220417
  9. METOPROLOL SUCCINATE [Concomitant]
     Active Substance: METOPROLOL SUCCINATE
     Dosage: ER TAB
     Route: 048
     Dates: start: 20210819, end: 20220419
  10. METOPROLOL SUCCINATE [Concomitant]
     Active Substance: METOPROLOL SUCCINATE
     Route: 048
     Dates: start: 20210818, end: 20210819
  11. ROPINIROLE [Concomitant]
     Active Substance: ROPINIROLE
     Dosage: TAKE 1 1/2 TABLETS 3 TIMES A DAY
     Route: 048
     Dates: start: 20210818
  12. TYLENOL [Concomitant]
     Active Substance: ACETAMINOPHEN
     Indication: Body temperature increased
     Route: 048
     Dates: start: 20210818
  13. NORCO [Concomitant]
     Active Substance: ACETAMINOPHEN\HYDROCODONE BITARTRATE
     Indication: Pain
     Route: 048
     Dates: start: 20210818, end: 20210917
  14. ASPIRIN [Concomitant]
     Active Substance: ASPIRIN
     Route: 048
     Dates: start: 20210818, end: 20220417
  15. TESSALON [Concomitant]
     Active Substance: BENZONATATE
     Indication: Cough
     Route: 048
     Dates: start: 20210818, end: 20210917
  16. HEPARIN [Concomitant]
     Active Substance: HEPARIN SODIUM
     Dosage: 5000 UNIT
     Route: 058
     Dates: start: 20210818, end: 20210917
  17. HEPARIN [Concomitant]
     Active Substance: HEPARIN SODIUM
     Dosage: 5000 UNITS
     Route: 042
     Dates: start: 20210819
  18. HYDRALAZINE [Concomitant]
     Active Substance: HYDRALAZINE HYDROCHLORIDE
     Indication: Blood pressure systolic increased
     Route: 042
     Dates: start: 20210818, end: 20210917
  19. MAGNESIUM OXIDE [Concomitant]
     Active Substance: MAGNESIUM OXIDE
     Indication: Hypomagnesaemia
     Route: 048
     Dates: start: 20210818
  20. MAGNESIUM SULFATE [Concomitant]
     Active Substance: MAGNESIUM SULFATE\MAGNESIUM SULFATE HEPTAHYDRATE
     Indication: Hypomagnesaemia
     Route: 042
     Dates: start: 20210818
  21. MORPHINE [Concomitant]
     Active Substance: MORPHINE
     Indication: Chest pain
     Route: 042
     Dates: start: 20210818
  22. NITROGLYCERIN [Concomitant]
     Active Substance: NITROGLYCERIN
     Indication: Chest pain
     Route: 060
     Dates: start: 20210818
  23. NITROGLYCERIN [Concomitant]
     Active Substance: NITROGLYCERIN
     Route: 022
     Dates: start: 20210819
  24. ZOFRAN [Concomitant]
     Active Substance: ONDANSETRON HYDROCHLORIDE
     Indication: Nausea
     Route: 042
     Dates: start: 20210818, end: 20210917
  25. ZOFRAN [Concomitant]
     Active Substance: ONDANSETRON HYDROCHLORIDE
     Indication: Vomiting
  26. EFFER K [Concomitant]
     Indication: Hypokalaemia
     Route: 048
     Dates: start: 20210818
  27. EFFER K [Concomitant]
     Route: 048
     Dates: start: 20210818
  28. SODIUM CHLORIDE [Concomitant]
     Active Substance: SODIUM CHLORIDE
     Dosage: 100ML/HR
     Route: 042
     Dates: start: 20210818, end: 20210818
  29. AMINOPHYLLINE [Concomitant]
     Active Substance: AMINOPHYLLINE
     Route: 042
  30. AMLODIPINE [Concomitant]
     Active Substance: AMLODIPINE BESYLATE
     Route: 048
  31. AMLODIPINE [Concomitant]
     Active Substance: AMLODIPINE BESYLATE
     Route: 048
     Dates: start: 20210819, end: 20220417
  32. OXYGEN [Concomitant]
     Active Substance: OXYGEN
     Dosage: 2L/MIN
     Route: 045
     Dates: start: 20210819
  33. VERSED [Concomitant]
     Active Substance: MIDAZOLAM HYDROCHLORIDE
     Indication: Sedation
     Route: 042
     Dates: start: 20210819
  34. FENTANYL [Concomitant]
     Active Substance: FENTANYL\FENTANYL CITRATE
     Indication: Sedation
  35. LIDOCAINE [Concomitant]
     Active Substance: LIDOCAINE
     Indication: Anaesthesia
     Dosage: 2%
     Dates: start: 20210819
  36. VERAPAMIL [Concomitant]
     Active Substance: VERAPAMIL HYDROCHLORIDE
     Route: 013
     Dates: start: 20210819
  37. LIPITOR [Concomitant]
     Active Substance: ATORVASTATIN CALCIUM
     Dosage: BED TIME (HS)
     Route: 048
     Dates: start: 20210818
  38. ALBUTEROL [Concomitant]
     Active Substance: ALBUTEROL
     Dosage: TAKE 2 PUFFS BY MOUTH EVERY 6 HOURS
     Route: 055
  39. BENICAR [Concomitant]
     Active Substance: OLMESARTAN MEDOXOMIL
     Route: 048
  40. CLONIDINE [Concomitant]
     Active Substance: CLONIDINE
     Route: 048
  41. TORSEMIDE [Concomitant]
     Active Substance: TORSEMIDE
     Dosage: MONDAY, WEDNESDAY, FRIDAY
     Route: 048

REACTIONS (7)
  - Dyspnoea exertional [Not Recovered/Not Resolved]
  - Chest pain [Unknown]
  - Coronary artery disease [Unknown]
  - Cardiac failure congestive [Unknown]
  - Restless legs syndrome [Unknown]
  - Gastrooesophageal reflux disease [Unknown]
  - Hypertension [Unknown]
